FAERS Safety Report 5407157-4 (Version None)
Quarter: 2007Q3

REPORT INFORMATION
  Report Type: 
  Country: None (occurrence: None)
  Receive Date: 20070803
  Receipt Date: 20070803
  Transmission Date: 20080115
  Serious: No
  Sender: FDA-Public Use
  Company Number: None

PATIENT
  Sex: Female
  Weight: 74.1 kg

DRUGS (3)
  1. TEMOZOLOMIDE [Suspect]
     Dosage: 3420 MG
  2. TEMOZOLOMIDE [Suspect]
  3. TEMOZOLOMIDE [Suspect]

REACTIONS (2)
  - MEDICATION ERROR [None]
  - PLATELET COUNT DECREASED [None]
